FAERS Safety Report 4656557-9 (Version None)
Quarter: 2005Q2

REPORT INFORMATION
  Report Type: 
  Country: None (occurrence: None)
  Receive Date: 20050509
  Receipt Date: 20050502
  Transmission Date: 20051028
  Serious: Yes (Other)
  Sender: FDA-Public Use
  Company Number: US-BRISTOL-MYERS SQUIBB COMPANY-12953014

PATIENT
  Age: 47 Year
  Sex: Male
  Weight: 63 kg

DRUGS (2)
  1. ERBITUX [Suspect]
     Indication: NASOPHARYNGEAL CANCER
     Route: 042
     Dates: start: 20050401
  2. SYNTHROID [Concomitant]

REACTIONS (1)
  - DEAFNESS [None]
